FAERS Safety Report 6226027-5 (Version None)
Quarter: 2009Q2

REPORT INFORMATION
  Report Type: 
  Country: None (occurrence: None)
  Receive Date: 20090612
  Receipt Date: 20090604
  Transmission Date: 20091009
  Serious: Yes (Death)
  Sender: FDA-Public Use
  Company Number: BR-TEVA-197646ISR

PATIENT
  Sex: Female

DRUGS (1)
  1. BUDESONIDE [Suspect]

REACTIONS (1)
  - CARDIAC ARREST [None]
